FAERS Safety Report 19658907 (Version 1)
Quarter: 2021Q3

REPORT INFORMATION
  Report Type: Report from Study
  Country: US (occurrence: US)
  Receive Date: 20210804
  Receipt Date: 20210804
  Transmission Date: 20211014
  Serious: Yes (Other)
  Sender: FDA-Public Use
  Company Number: US-BIOGEN-2021BI01033612

PATIENT
  Sex: Female

DRUGS (4)
  1. VUMERITY [Suspect]
     Active Substance: DIROXIMEL FUMARATE
     Indication: MULTIPLE SCLEROSIS
     Route: 048
     Dates: start: 20210521
  2. ZOLOFT [Concomitant]
     Active Substance: SERTRALINE HYDROCHLORIDE
     Indication: ANXIETY
     Route: 065
  3. TOPAMAX [Concomitant]
     Active Substance: TOPIRAMATE
     Indication: ANXIETY
     Route: 065
  4. XANAX [Concomitant]
     Active Substance: ALPRAZOLAM
     Indication: ANXIETY
     Route: 065

REACTIONS (11)
  - Depression [Unknown]
  - Impaired gastric emptying [Unknown]
  - Contusion [Unknown]
  - Dizziness [Unknown]
  - Loss of consciousness [Unknown]
  - Pancreatitis [Unknown]
  - Blindness transient [Recovered/Resolved]
  - Flushing [Unknown]
  - Back pain [Unknown]
  - Abdominal discomfort [Unknown]
  - Hallucination [Unknown]
